FAERS Safety Report 5575073-3 (Version None)
Quarter: 2007Q4

REPORT INFORMATION
  Report Type: 
  Country: None (occurrence: None)
  Receive Date: 20071227
  Receipt Date: 20071212
  Transmission Date: 20080405
  Serious: Yes (Hospitalization)
  Sender: FDA-Public Use
  Company Number: JP-GENENTECH-253303

PATIENT
  Age: 40 Year
  Sex: Female

DRUGS (9)
  1. BEVACIZUMAB [Suspect]
     Indication: COLON CANCER
     Dosage: 5 MG/KG, UNK
     Route: 041
     Dates: start: 20070809
  2. OXALIPLATIN [Suspect]
     Indication: COLON CANCER
     Dosage: 85 MG/M2, UNK
     Route: 041
     Dates: start: 20070809
  3. FLUOROURACIL [Suspect]
     Indication: COLON CANCER
     Route: 040
     Dates: start: 20070706
  4. ISOVORIN [Suspect]
     Indication: COLON CANCER
     Route: 041
     Dates: start: 20070706
  5. IRINOTECAN HCL [Suspect]
     Indication: COLON CANCER
     Route: 041
     Dates: start: 20070706
  6. KYTRIL [Concomitant]
     Indication: DRUG USE FOR UNKNOWN INDICATION
     Dates: start: 20070809, end: 20070907
  7. DECADRON [Concomitant]
     Indication: DRUG USE FOR UNKNOWN INDICATION
     Dates: start: 20070809, end: 20070907
  8. MAGNESIUM OXIDE [Concomitant]
     Indication: DRUG USE FOR UNKNOWN INDICATION
     Dates: start: 20070809
  9. LOXOPROFEN [Concomitant]
     Indication: DRUG USE FOR UNKNOWN INDICATION
     Dates: start: 20070809

REACTIONS (1)
  - INTESTINAL OBSTRUCTION [None]
